FAERS Safety Report 9821527 (Version 2)
Quarter: 2014Q2

REPORT INFORMATION
  Report Type: Spontaneous
  Country: BR (occurrence: BR)
  Receive Date: 20140116
  Receipt Date: 20140617
  Transmission Date: 20141212
  Serious: No
  Sender: FDA-Public Use
  Company Number: BR-B.I. PHARMACEUTICALS,INC./RIDGEFIELD-2014-BI-01749BR

PATIENT
  Age: 72 Year
  Sex: Male
  Weight: 80 kg

DRUGS (12)
  1. TRAYENTA [Suspect]
     Indication: TYPE 2 DIABETES MELLITUS
     Dosage: 5 MG
     Route: 048
     Dates: start: 201309
  2. INSULINA LANTUS [Concomitant]
     Indication: TYPE 2 DIABETES MELLITUS
     Route: 058
     Dates: start: 2004
  3. INSULINA HUMALOG [Concomitant]
     Indication: TYPE 2 DIABETES MELLITUS
     Route: 058
     Dates: start: 2004
  4. PURAN [Concomitant]
     Dosage: 50 MG
     Route: 048
     Dates: start: 2004
  5. SERENATA [Concomitant]
     Indication: ANTIDEPRESSANT THERAPY
     Route: 048
     Dates: start: 2004
  6. DIOVAN [Concomitant]
     Indication: CARDIAC DISORDER
     Dosage: DOSE PER APPLICATION AND DAILY DOSE : 320/5 MG
     Route: 048
     Dates: start: 2004
  7. VASOGARD [Concomitant]
     Indication: CARDIAC DISORDER
     Dosage: 200 MG
     Route: 048
     Dates: start: 2004
  8. VARFAREL [Concomitant]
     Indication: CARDIAC DISORDER
     Dosage: 70 MG
     Route: 048
     Dates: start: 2004
  9. DARCILON [Concomitant]
     Indication: PULMONARY VASCULAR DISORDER
     Dosage: 1000 MG
     Route: 048
     Dates: start: 2004
  10. METFORMIN [Concomitant]
     Indication: TYPE 2 DIABETES MELLITUS
     Dosage: 1700 MG
     Route: 048
     Dates: start: 2004
  11. ASPIRINA [Concomitant]
     Indication: ANTICOAGULANT THERAPY
     Dosage: 200 MG
     Route: 048
     Dates: start: 1999
  12. LOPIDOGREL [Concomitant]
     Indication: CARDIAC DISORDER
     Dosage: 75 MG
     Route: 048
     Dates: start: 2004

REACTIONS (6)
  - Swelling [Recovered/Resolved]
  - Ageusia [Recovered/Resolved]
  - Chapped lips [Recovered/Resolved]
  - Oral discomfort [Recovered/Resolved]
  - Dry mouth [Unknown]
  - Oral pain [Unknown]
